FAERS Safety Report 4890368-4 (Version None)
Quarter: 2005Q4

REPORT INFORMATION
  Report Type: 
  Country: None (occurrence: None)
  Receive Date: 20051220
  Receipt Date: 20051115
  Transmission Date: 20060501
  Serious: Yes (Other)
  Sender: FDA-Public Use
  Company Number: 425139

PATIENT
  Sex: Female

DRUGS (12)
  1. BONIVA [Suspect]
     Indication: OSTEOPOROSIS
     Dosage: 150 MG 1 PER MONTH ORAL
     Route: 048
     Dates: start: 20051105
  2. NEXIUM [Concomitant]
  3. SINGULAIR [Concomitant]
  4. LISINOPRIL/HYDROCHLOROTHIAZIDE (HYDROCHLOROTHIAZIDE/LISINOPRIL) [Concomitant]
  5. ZETIA [Concomitant]
  6. AVANDIA [Concomitant]
  7. METFORMIN HCL [Concomitant]
  8. GLIPIZIDE [Concomitant]
  9. LEVOTHYROXINE SODIUM [Concomitant]
  10. FLONASE [Concomitant]
  11. ALLEGRA [Concomitant]
  12. ALBUTEROL [Concomitant]

REACTIONS (1)
  - ASTHMA [None]
